FAERS Safety Report 20207790 (Version 1)
Quarter: 2021Q4

REPORT INFORMATION
  Report Type: Report from Study
  Country: CA (occurrence: CA)
  Receive Date: 20211220
  Receipt Date: 20211220
  Transmission Date: 20220303
  Serious: Yes (Other)
  Sender: FDA-Public Use
  Company Number: CA-PFIZER INC-202101775271

PATIENT
  Sex: Female

DRUGS (24)
  1. ENBREL [Suspect]
     Active Substance: ETANERCEPT
     Dosage: UNK
     Route: 065
  2. RITUXIMAB [Suspect]
     Active Substance: RITUXIMAB
     Indication: Rheumatoid arthritis
     Dosage: 500 MG
     Route: 042
  3. RITUXIMAB [Suspect]
     Active Substance: RITUXIMAB
     Dosage: 1000 MG
     Route: 042
  4. RITUXIMAB [Suspect]
     Active Substance: RITUXIMAB
     Indication: Rheumatoid arthritis
     Dosage: EVERY 2 WEEKS
     Route: 042
  5. XELJANZ [Suspect]
     Active Substance: TOFACITINIB CITRATE
     Dosage: UNK
     Route: 065
  6. ACTEMRA [Suspect]
     Active Substance: TOCILIZUMAB
     Dosage: UNK
     Route: 065
  7. CIMZIA [Suspect]
     Active Substance: CERTOLIZUMAB PEGOL
     Dosage: UNK
     Route: 065
  8. ACETAMINOPHEN [Concomitant]
     Active Substance: ACETAMINOPHEN
     Dosage: 650 MG
     Route: 048
  9. ACETAZOLAMIDE [Concomitant]
     Active Substance: ACETAZOLAMIDE
     Dosage: 250 MG, 1X/DAY
     Route: 048
  10. BUDESONIDE\FORMOTEROL FUMARATE [Concomitant]
     Active Substance: BUDESONIDE\FORMOTEROL FUMARATE
     Dosage: UNK
  11. CELEBREX [Concomitant]
     Active Substance: CELECOXIB
     Dosage: 1 EVERY 2 DAYS
     Route: 065
  12. DIPHENHYDRAMINE [Concomitant]
     Active Substance: DIPHENHYDRAMINE
     Dosage: 50 MG
     Route: 048
  13. DIPHENHYDRAMINE [Concomitant]
     Active Substance: DIPHENHYDRAMINE
     Dosage: 25 MG
     Route: 042
  14. ELAVIL [Concomitant]
     Active Substance: AMITRIPTYLINE HYDROCHLORIDE
     Dosage: 50 MG, 1X/DAY
     Route: 065
  15. ELETRIPTAN HYDROBROMIDE [Concomitant]
     Active Substance: ELETRIPTAN HYDROBROMIDE
     Dosage: UNK
  16. FOLIC ACID [Concomitant]
     Active Substance: FOLIC ACID
     Dosage: UNK
  17. INSULIN NOS [Concomitant]
     Active Substance: INSULIN NOS
     Indication: Diabetes mellitus
     Dosage: UNK, 1X/DAY
     Route: 058
  18. METFORMIN [Concomitant]
     Active Substance: METFORMIN HYDROCHLORIDE
     Dosage: UNK, 1X/DAY
     Route: 065
  19. METHOTREXATE [Concomitant]
     Active Substance: METHOTREXATE
     Dosage: 15 MG, WEEKLY
     Route: 048
  20. METHYLPREDNISOLONE [Concomitant]
     Active Substance: METHYLPREDNISOLONE
     Dosage: UNK
     Route: 042
  21. MS CONTIN [Concomitant]
     Active Substance: MORPHINE SULFATE
     Indication: Pain management
     Dosage: 15 MG
     Route: 065
  22. PREDNISONE [Concomitant]
     Active Substance: PREDNISONE
     Dosage: UNK
  23. PREVACID [Concomitant]
     Active Substance: LANSOPRAZOLE
     Dosage: UNK
  24. RANITIDINE [Concomitant]
     Active Substance: RANITIDINE
     Dosage: UNK

REACTIONS (3)
  - Optic neuritis [Unknown]
  - Pancreatitis [Unknown]
  - Treatment failure [Unknown]
